FAERS Safety Report 11046765 (Version 1)
Quarter: 2015Q2

REPORT INFORMATION
  Report Type: Report from Study
  Country: US (occurrence: US)
  Receive Date: 20150420
  Receipt Date: 20150420
  Transmission Date: 20150821
  Serious: Yes (Other)
  Sender: FDA-Public Use
  Company Number: US-AMGEN-USASL2015037045

PATIENT
  Age: 47 Year
  Sex: Female

DRUGS (1)
  1. ENBREL [Suspect]
     Active Substance: ETANERCEPT
     Indication: PSORIATIC ARTHROPATHY
     Dosage: 50 MG, QWK
     Route: 058

REACTIONS (7)
  - Urinary tract infection [Unknown]
  - Cellulitis [Unknown]
  - Osteomyelitis [Unknown]
  - Cystitis [Unknown]
  - Kidney infection [Unknown]
  - Skin infection [Unknown]
  - Staphylococcal infection [Unknown]
